FAERS Safety Report 7134321-9 (Version None)
Quarter: 2010Q4

REPORT INFORMATION
  Report Type: 
  Country: None (occurrence: None)
  Receive Date: 20101203
  Receipt Date: 20101124
  Transmission Date: 20110411
  Serious: Yes (Other)
  Sender: FDA-Public Use
  Company Number: US-SANOFI-AVENTIS-2010SA072315

PATIENT
  Age: 73 Year
  Sex: Male
  Weight: 115 kg

DRUGS (11)
  1. MULTAQ [Suspect]
     Indication: ATRIAL FIBRILLATION
     Route: 048
     Dates: start: 20091101, end: 20101101
  2. MULTAQ [Suspect]
     Route: 048
     Dates: start: 20101101
  3. MAGNESIUM [Concomitant]
  4. NIFEDIPINE [Concomitant]
  5. METOPROLOL [Concomitant]
  6. ALLOPURINOL [Concomitant]
  7. FLOMAX [Concomitant]
  8. LASIX [Concomitant]
  9. SPIRONOLACTONE [Concomitant]
  10. COUMADIN [Concomitant]
  11. FOSAMAX [Concomitant]

REACTIONS (6)
  - CARDIAC FAILURE CONGESTIVE [None]
  - HYPOTENSION [None]
  - OEDEMA PERIPHERAL [None]
  - SKIN EXFOLIATION [None]
  - TACHYCARDIA [None]
  - UNDERDOSE [None]
